FAERS Safety Report 17100210 (Version 1)
Quarter: 2019Q4

REPORT INFORMATION
  Report Type: Spontaneous
  Country: US (occurrence: US)
  Receive Date: 20191202
  Receipt Date: 20191202
  Transmission Date: 20200122
  Serious: No
  Sender: FDA-Public Use
  Company Number: US-009507513-1911USA011931

PATIENT
  Sex: Female

DRUGS (2)
  1. PRINIVIL [Suspect]
     Active Substance: LISINOPRIL
  2. ZOCOR [Suspect]
     Active Substance: SIMVASTATIN

REACTIONS (3)
  - Cough [Unknown]
  - Rash [Unknown]
  - Drug hypersensitivity [Unknown]
